FAERS Safety Report 9548468 (Version 1)
Quarter: 2013Q3

REPORT INFORMATION
  Report Type: Spontaneous
  Country: US (occurrence: US)
  Receive Date: 20130924
  Receipt Date: 20130924
  Transmission Date: 20140515
  Serious: No
  Sender: FDA-Public Use
  Company Number: US-PFIZER INC-2013271689

PATIENT
  Age: 68 Year
  Sex: Male
  Weight: 79.37 kg

DRUGS (5)
  1. ADVIL [Suspect]
     Indication: PAIN
     Dosage: 200 MG, UNK
     Dates: start: 20130918, end: 20130918
  2. NEURONTIN [Concomitant]
     Indication: NEUROPATHY PERIPHERAL
     Dosage: 600MG TABLET IN THE MORNING
     Route: 048
     Dates: start: 2002
  3. NEURONTIN [Concomitant]
     Indication: NEUROPATHY PERIPHERAL
     Dosage: 300MG CAPSULE IN THE EVENING
     Route: 048
     Dates: start: 2002
  4. ZOCOR [Concomitant]
     Indication: BLOOD CHOLESTEROL INCREASED
     Dosage: 20 MG, UNK
  5. ELAVIL [Concomitant]
     Dosage: 10 MG, ONCE A DAY

REACTIONS (4)
  - Oropharyngeal pain [Unknown]
  - Throat irritation [Unknown]
  - Dysphagia [Unknown]
  - Product quality issue [Unknown]
